FAERS Safety Report 14583719 (Version 13)
Quarter: 2020Q1

REPORT INFORMATION
  Report Type: Spontaneous
  Country: US (occurrence: US)
  Receive Date: 20180228
  Receipt Date: 20200302
  Transmission Date: 20200409
  Serious: Yes (Hospitalization)
  Sender: FDA-Public Use
  Company Number: US-ACTELION-A-US2018-168289

PATIENT
  Age: 56 Year
  Sex: Female
  Weight: 67.12 kg

DRUGS (4)
  1. ADCIRCA [Concomitant]
     Active Substance: TADALAFIL
  2. TRACLEER [Suspect]
     Active Substance: BOSENTAN
     Indication: PULMONARY ARTERIAL HYPERTENSION
     Dosage: 125 MG, BID
     Route: 048
     Dates: start: 20181024
  3. UPTRAVI [Suspect]
     Active Substance: SELEXIPAG
     Indication: PULMONARY ARTERIAL HYPERTENSION
     Dosage: 1600 MCG, BID
     Route: 048
     Dates: start: 20181024
  4. OXYGEN. [Concomitant]
     Active Substance: OXYGEN

REACTIONS (10)
  - Hospitalisation [Unknown]
  - Pneumonia [Unknown]
  - Lung disorder [Unknown]
  - Dyspnoea exertional [Unknown]
  - Fluid retention [Unknown]
  - Product dose omission [Unknown]
  - Dyspnoea [Unknown]
  - Oxygen saturation decreased [Unknown]
  - Respiration abnormal [Unknown]
  - Fluid overload [Unknown]

NARRATIVE: CASE EVENT DATE: 20190623
